FAERS Safety Report 17526189 (Version 1)
Quarter: 2020Q1

REPORT INFORMATION
  Report Type: Spontaneous
  Country: US (occurrence: US)
  Receive Date: 20200303
  Receipt Date: 20200303
  Transmission Date: 20200409
  Serious: No
  Sender: FDA-Public Use
  Company Number: None

PATIENT
  Age: 67 Year
  Sex: Male

DRUGS (1)
  1. CLONIDINE HCL 0.1MG MYLAN [Suspect]
     Active Substance: CLONIDINE HYDROCHLORIDE
     Indication: HYPERTENSION
     Dosage: ?          OTHER DOSE:0.1;?
     Route: 002
     Dates: start: 20200302

REACTIONS (1)
  - Expired product administered [None]

NARRATIVE: CASE EVENT DATE: 20200302
